FAERS Safety Report 24416748 (Version 2)
Quarter: 2024Q4

REPORT INFORMATION
  Report Type: Spontaneous
  Country: PL (occurrence: PL)
  Receive Date: 20241009
  Receipt Date: 20241016
  Transmission Date: 20250115
  Serious: Yes (Hospitalization, Other)
  Sender: GILEAD
  Company Number: PL-GILEAD-2024-0690203

PATIENT
  Age: 60 Year
  Sex: Male

DRUGS (12)
  1. TECARTUS [Suspect]
     Active Substance: BREXUCABTAGENE AUTOLEUCEL
     Indication: Mantle cell lymphoma
     Dosage: UNK
     Route: 042
     Dates: start: 20240520, end: 20240520
  2. IBRUTINIB [Concomitant]
     Active Substance: IBRUTINIB
     Dosage: UNK
     Dates: end: 20240406
  3. RITUXIMAB [Concomitant]
     Active Substance: RITUXIMAB
     Indication: Lymphodepletion
     Dosage: UNK
     Dates: start: 20240412, end: 20240416
  4. BENDAMUSTINE [Concomitant]
     Active Substance: BENDAMUSTINE
     Dosage: UNK
     Dates: start: 20240412, end: 20240416
  5. CYTARABINE [Concomitant]
     Active Substance: CYTARABINE
     Indication: Lymphodepletion
     Dosage: UNK
     Dates: start: 20240412, end: 20240416
  6. ACETAMINOPHEN [Concomitant]
     Active Substance: ACETAMINOPHEN
  7. CLEMASTINE [Concomitant]
     Active Substance: CLEMASTINE
  8. HASCOVIR [Concomitant]
  9. BISEPTOL [Concomitant]
     Active Substance: SULFAMETHOXAZOLE\TRIMETHOPRIM
  10. LEVOXA [LEVOFLOXACIN] [Concomitant]
  11. FLUCONAZOLE [Concomitant]
     Active Substance: FLUCONAZOLE
  12. LEVETIRACETAM [Concomitant]
     Active Substance: LEVETIRACETAM

REACTIONS (8)
  - Pancytopenia [Recovering/Resolving]
  - Cytomegalovirus infection reactivation [Unknown]
  - Clostridium difficile colitis [Unknown]
  - Staphylococcal bacteraemia [Unknown]
  - Eye pain [Recovering/Resolving]
  - Adjustment disorder [Unknown]
  - Hypogammaglobulinaemia [Unknown]
  - Cytokine release syndrome [Recovering/Resolving]

NARRATIVE: CASE EVENT DATE: 20240520
